FAERS Safety Report 14598790 (Version 1)
Quarter: 2018Q1

REPORT INFORMATION
  Report Type: Spontaneous
  Country: US (occurrence: US)
  Receive Date: 20180305
  Receipt Date: 20180305
  Transmission Date: 20180509
  Serious: Yes (Other)
  Sender: FDA-Public Use
  Company Number: US-BAYER-2018-039296

PATIENT
  Sex: Female

DRUGS (2)
  1. MIRENA [Suspect]
     Active Substance: LEVONORGESTREL
     Indication: GENITAL HAEMORRHAGE
     Dosage: 20 MCG/24HR, CONT
     Route: 015
     Dates: start: 2016, end: 201802
  2. MIRENA [Suspect]
     Active Substance: LEVONORGESTREL
     Indication: GENITAL HAEMORRHAGE

REACTIONS (8)
  - Post procedural haemorrhage [Not Recovered/Not Resolved]
  - Libido decreased [None]
  - Anaemia [Not Recovered/Not Resolved]
  - Off label use of device [None]
  - Therapeutic product effective for unapproved indication [None]
  - Hyperhidrosis [None]
  - Device use issue [None]
  - Hormone level abnormal [None]

NARRATIVE: CASE EVENT DATE: 2016
